FAERS Safety Report 21018002 (Version 2)
Quarter: 2023Q1

REPORT INFORMATION
  Report Type: Spontaneous
  Country: CN (occurrence: CN)
  Receive Date: 20220628
  Receipt Date: 20230227
  Transmission Date: 20230418
  Serious: Yes (Other)
  Sender: FDA-Public Use
  Company Number: CN-PFIZER INC-PV202200009614

PATIENT
  Age: 64 Year
  Sex: Female
  Weight: 55 kg

DRUGS (12)
  1. CELEBREX [Suspect]
     Active Substance: CELECOXIB
     Indication: Fracture pain
     Dosage: 0.2 G, 2X/DAY
     Route: 048
     Dates: start: 20200208, end: 20200213
  2. CELEBREX [Suspect]
     Active Substance: CELECOXIB
     Dosage: 0.2 G, 1X/DAY
     Route: 048
     Dates: start: 20200216, end: 20200221
  3. DYNASTAT [Suspect]
     Active Substance: PARECOXIB SODIUM
     Indication: Pain
     Dosage: 40 MG, 2X/DAY
     Route: 042
     Dates: start: 20200214, end: 20200215
  4. DYNASTAT [Suspect]
     Active Substance: PARECOXIB SODIUM
     Dosage: 40 MG, 2X/DAY
     Route: 042
     Dates: start: 20200219, end: 20200223
  5. MEROPENEM [Suspect]
     Active Substance: MEROPENEM
     Indication: Post procedural infection
     Dosage: 0.5 G, 3X/DAY
     Route: 041
     Dates: start: 20200217, end: 20200219
  6. MEROPENEM [Suspect]
     Active Substance: MEROPENEM
     Dosage: 0.5 G, 3X/DAY
     Route: 041
     Dates: start: 20200223, end: 20200226
  7. SODIUM CHLORIDE [Concomitant]
     Active Substance: SODIUM CHLORIDE
     Indication: Vehicle solution use
     Dosage: 2 ML, 2X/DAY
     Route: 042
     Dates: start: 20200214, end: 20200215
  8. SODIUM CHLORIDE [Concomitant]
     Active Substance: SODIUM CHLORIDE
     Dosage: 2 ML, 2X/DAY
     Route: 042
     Dates: start: 20200219, end: 20200223
  9. SODIUM CHLORIDE [Concomitant]
     Active Substance: SODIUM CHLORIDE
     Indication: Vehicle solution use
     Dosage: 100 ML, 3X/DAY
     Route: 041
     Dates: start: 20200217, end: 20200219
  10. SODIUM CHLORIDE [Concomitant]
     Active Substance: SODIUM CHLORIDE
     Dosage: 100 ML, 3X/DAY
     Route: 041
     Dates: start: 20200223, end: 20200226
  11. SODIUM ESCINATE [Concomitant]
     Active Substance: SODIUM ESCINATE
     Indication: Cardiovascular disorder
     Dosage: 10 MG, 1X/DAY
     Route: 041
     Dates: start: 20200208, end: 20200228
  12. DEXTROSE [Concomitant]
     Active Substance: DEXTROSE
     Indication: Vehicle solution use
     Dosage: 250 ML, 1X/DAY
     Route: 041
     Dates: start: 20200208, end: 20200228

REACTIONS (2)
  - Liver injury [Recovering/Resolving]
  - Post procedural infection [Unknown]

NARRATIVE: CASE EVENT DATE: 20200201
